FAERS Safety Report 13578350 (Version 1)
Quarter: 2017Q2

REPORT INFORMATION
  Report Type: Spontaneous
  Country: FR (occurrence: FR)
  Receive Date: 20170524
  Receipt Date: 20170524
  Transmission Date: 20170830
  Serious: Yes (Hospitalization, Disabling, Congenital Anomaly)
  Sender: FDA-Public Use
  Company Number: FR-ABBVIE-17P-056-1986370-00

PATIENT
  Sex: Male

DRUGS (1)
  1. DEPAKINE CHRONO [Suspect]
     Active Substance: VALPROATE SODIUM
     Indication: MATERNAL EXPOSURE TIMING UNSPECIFIED
     Route: 064

REACTIONS (21)
  - Hypotonia neonatal [Unknown]
  - Multiple congenital abnormalities [Unknown]
  - Foot deformity [Unknown]
  - Craniosynostosis [Unknown]
  - Impaired reasoning [Unknown]
  - Hypotelorism of orbit [Unknown]
  - Intellectual disability [Unknown]
  - Neck deformity [Unknown]
  - Hypospadias [Unknown]
  - Dysmorphism [Unknown]
  - Language disorder [Unknown]
  - Lip disorder [Unknown]
  - Neurodevelopmental disorder [Unknown]
  - Ear disorder [Unknown]
  - Speech disorder developmental [Unknown]
  - Plagiocephaly [Unknown]
  - Arachnodactyly [Unknown]
  - Disturbance in attention [Unknown]
  - Foetal exposure during pregnancy [Unknown]
  - Strabismus [Unknown]
  - Developmental delay [Unknown]
